FAERS Safety Report 25985261 (Version 1)
Quarter: 2025Q4

REPORT INFORMATION
  Report Type: Spontaneous
  Country: US (occurrence: US)
  Receive Date: 20251031
  Receipt Date: 20251031
  Transmission Date: 20260117
  Serious: No
  Sender: Tarsus Pharmaceuticals
  Company Number: US-TARSUS PHARMACEUTICALS-TSP-US-2025-000827

PATIENT

DRUGS (5)
  1. XDEMVY [Suspect]
     Active Substance: LOTILANER
     Indication: Arthropod infestation
     Dosage: 1 DROP, INTO BOTH EYES EVERY 12 HOURS FOR 6 WEEKS
     Route: 047
     Dates: start: 20250806, end: 20250806
  2. XDEMVY [Suspect]
     Active Substance: LOTILANER
     Indication: Ocular demodicosis
  3. OZEMPIC [Concomitant]
     Active Substance: SEMAGLUTIDE
     Indication: Product used for unknown indication
     Dosage: UNK
     Route: 065
  4. CEQUA [Concomitant]
     Active Substance: CYCLOSPORINE
     Indication: Product used for unknown indication
     Dosage: UNK
     Route: 065
  5. SYSTANE (HYPROMELLOSE 2910 (4000 MPA.S)) [Concomitant]
     Active Substance: HYPROMELLOSE 2910 (4000 MPA.S)
     Indication: Product used for unknown indication
     Dosage: UNK
     Route: 065

REACTIONS (2)
  - Foreign body sensation in eyes [Recovered/Resolved]
  - Product storage error [Unknown]

NARRATIVE: CASE EVENT DATE: 20250806
